FAERS Safety Report 6918964-0 (Version None)
Quarter: 2010Q3

REPORT INFORMATION
  Report Type: 
  Country: None (occurrence: None)
  Receive Date: 20100811
  Receipt Date: 20100728
  Transmission Date: 20110219
  Serious: Yes (Death, Hospitalization, Other)
  Sender: FDA-Public Use
  Company Number: CH-SANOFI-AVENTIS-2010SA046888

PATIENT
  Age: 49 Year
  Sex: Female

DRUGS (18)
  1. FLUDARABINE PHOSPHATE [Suspect]
     Route: 065
  2. PREDNISONE [Suspect]
     Route: 065
  3. BLEOMYCIN [Suspect]
     Route: 065
  4. DOXORUBICIN HCL [Suspect]
     Route: 065
  5. CYCLOSPORINE [Suspect]
     Route: 065
  6. VINCRISTINE [Suspect]
     Route: 065
  7. PROCARBAZINE HYDROCHLORIDE [Suspect]
     Route: 065
  8. MELPHALAN [Suspect]
     Route: 065
  9. ANTILYMPHOCYTE SERUM [Suspect]
     Route: 065
  10. VINBLASTINE SULFATE [Concomitant]
  11. DACARBAZINE [Concomitant]
  12. IFOSFAMIDE [Concomitant]
     Indication: DISEASE PROGRESSION
  13. CARBOPLATIN [Concomitant]
     Indication: DISEASE PROGRESSION
  14. ETOPOSIDE [Concomitant]
     Indication: DISEASE PROGRESSION
  15. DEXAMETHASONE [Concomitant]
     Indication: DISEASE PROGRESSION
  16. CYTARABINE [Concomitant]
     Indication: DISEASE PROGRESSION
  17. CISPLATIN [Concomitant]
     Indication: DISEASE PROGRESSION
  18. ANTILYMPHOCYTE SERUM [Concomitant]

REACTIONS (14)
  - ACUTE GRAFT VERSUS HOST DISEASE [None]
  - ACUTE GRAFT VERSUS HOST DISEASE IN LIVER [None]
  - CATHETER SITE INFECTION [None]
  - CONFUSIONAL STATE [None]
  - CYTOMEGALOVIRUS INFECTION [None]
  - DIARRHOEA [None]
  - DYSPNOEA [None]
  - GRANULOCYTOPENIA [None]
  - IMMUNOSUPPRESSION [None]
  - MICROSPORUM INFECTION [None]
  - NEUTROPENIA [None]
  - PULMONARY MYCOSIS [None]
  - PYREXIA [None]
  - STAPHYLOCOCCAL INFECTION [None]
